FAERS Safety Report 8432362-2 (Version None)
Quarter: 2012Q2

REPORT INFORMATION
  Report Type: 
  Country: None (occurrence: None)
  Receive Date: 20120613
  Receipt Date: 20120605
  Transmission Date: 20120825
  Serious: Yes (Death, Hospitalization)
  Sender: FDA-Public Use
  Company Number: BR-ELI_LILLY_AND_COMPANY-BR201201006238

PATIENT
  Sex: Female

DRUGS (1)
  1. FORTEO [Suspect]
     Indication: OSTEOPOROSIS
     Dosage: UNK, QD
     Route: 058
     Dates: start: 20111001

REACTIONS (4)
  - PULMONARY OEDEMA [None]
  - DRUG DOSE OMISSION [None]
  - DYSPNOEA [None]
  - RESPIRATORY ARREST [None]
